FAERS Safety Report 21846033 (Version 4)
Quarter: 2023Q2

REPORT INFORMATION
  Report Type: Spontaneous
  Country: CA (occurrence: CA)
  Receive Date: 20230111
  Receipt Date: 20230626
  Transmission Date: 20230722
  Serious: Yes (Other)
  Sender: FDA-Public Use
  Company Number: CA-CELLTRION INC.-2023CA000288

PATIENT

DRUGS (2)
  1. INFLECTRA [Suspect]
     Active Substance: INFLIXIMAB-DYYB
     Indication: Crohn^s disease
     Dosage: 400 MG, EVERY 8 WEEKS
     Route: 042
     Dates: start: 20220405
  2. SOLU-CORTEF [Concomitant]
     Active Substance: HYDROCORTISONE SODIUM SUCCINATE
     Indication: Premedication
     Dosage: UNK

REACTIONS (15)
  - Ileostomy [Not Recovered/Not Resolved]
  - Proctocolectomy [Unknown]
  - Drug level decreased [Unknown]
  - Fatigue [Recovered/Resolved]
  - Generalised oedema [Recovered/Resolved]
  - Face oedema [Recovered/Resolved]
  - Weight increased [Not Recovered/Not Resolved]
  - Depressed mood [Recovered/Resolved]
  - Blood alkaline phosphatase increased [Unknown]
  - Blood pressure increased [Not Recovered/Not Resolved]
  - Abdominal discomfort [Unknown]
  - Flushing [Not Recovered/Not Resolved]
  - Fatigue [Not Recovered/Not Resolved]
  - Swelling face [Not Recovered/Not Resolved]
  - Off label use [Unknown]

NARRATIVE: CASE EVENT DATE: 20220101
